FAERS Safety Report 24329225 (Version 1)
Quarter: 2024Q3

REPORT INFORMATION
  Report Type: Spontaneous
  Country: US (occurrence: US)
  Receive Date: 20240917
  Receipt Date: 20240917
  Transmission Date: 20241017
  Serious: Yes (Hospitalization)
  Sender: JOHNSON AND JOHNSON
  Company Number: US-JNJFOC-20240934743

PATIENT
  Age: 17 Year
  Sex: Female

DRUGS (1)
  1. MENS ROGAINE [Suspect]
     Active Substance: MINOXIDIL
     Indication: Accidental exposure to product
     Dosage: 60 ML OF 5% TOPICAL MINOXIDIL (3000 MG)
     Route: 048

REACTIONS (13)
  - Acidosis [Recovered/Resolved]
  - Cardiac failure high output [Recovered/Resolved]
  - Acute pulmonary oedema [Recovered/Resolved]
  - Shock [Recovered/Resolved]
  - Accidental exposure to product [Recovered/Resolved]
  - Lactic acidosis [Recovered/Resolved]
  - Hypertransaminasaemia [Recovered/Resolved]
  - Subendocardial ischaemia [Recovered/Resolved]
  - Hyperdynamic left ventricle [Recovered/Resolved]
  - Fluid retention [Recovered/Resolved]
  - Heart valve incompetence [Recovered/Resolved]
  - Product use issue [Recovered/Resolved]
  - Accidental overdose [Unknown]
